FAERS Safety Report 5521521-4 (Version None)
Quarter: 2007Q4

REPORT INFORMATION
  Report Type: 
  Country: None (occurrence: None)
  Receive Date: 20071116
  Receipt Date: 20071116
  Transmission Date: 20080405
  Serious: Yes (Hospitalization)
  Sender: FDA-Public Use
  Company Number: None

PATIENT
  Sex: Female
  Weight: 58.514 kg

DRUGS (5)
  1. TEMODAR [Suspect]
     Indication: MALIGNANT MELANOMA
     Dosage: PO DAILY X7 DAYS, 2 WKS
     Route: 048
     Dates: start: 20070228, end: 20070701
  2. SUTENT [Suspect]
     Indication: MALIGNANT MELANOMA
     Dosage: PO DAILY 21 DAYS
     Route: 048
     Dates: start: 20070307, end: 20070701
  3. ZOFRAN [Concomitant]
  4. LOTREL [Concomitant]
  5. METAMUCIL [Concomitant]

REACTIONS (7)
  - ABDOMINAL PAIN [None]
  - DIARRHOEA [None]
  - DISEASE RECURRENCE [None]
  - DIVERTICULITIS [None]
  - NAUSEA [None]
  - PANCYTOPENIA [None]
  - VOMITING [None]
